FAERS Safety Report 9903799 (Version 1)
Quarter: 2014Q1

REPORT INFORMATION
  Report Type: Spontaneous
  Country: US (occurrence: US)
  Receive Date: 20140218
  Receipt Date: 20140218
  Transmission Date: 20141002
  Serious: Yes (Hospitalization)
  Sender: FDA-Public Use
  Company Number: US-BIOGENIDEC-2014BI015624

PATIENT
  Age: 47 Year
  Sex: Female
  Weight: 75 kg

DRUGS (24)
  1. TYSABRI [Suspect]
     Indication: MULTIPLE SCLEROSIS
     Route: 042
     Dates: start: 20071001, end: 20090910
  2. TYSABRI [Suspect]
     Indication: MULTIPLE SCLEROSIS
     Route: 042
     Dates: start: 20100702, end: 20121218
  3. VESICARE [Concomitant]
  4. HYDROMET [Concomitant]
  5. FLOVENT HFA [Concomitant]
  6. IBUPROFEN [Concomitant]
  7. GABAPENTIN [Concomitant]
  8. TIZANIDINE HCL [Concomitant]
  9. PROMETHAZINE [Concomitant]
  10. FLEXERIL [Concomitant]
  11. PAROXETINE [Concomitant]
  12. RISPERIDONE [Concomitant]
  13. ASPIRIN [Concomitant]
  14. FOLIC ACID [Concomitant]
  15. MELATONIN [Concomitant]
  16. ABILIFY [Concomitant]
  17. ALPRAZOLAM [Concomitant]
  18. OXYCODONE [Concomitant]
  19. PREDNISONE [Concomitant]
  20. CHANTIX [Concomitant]
  21. ALENDRONATE [Concomitant]
  22. PERCOCET [Concomitant]
  23. SOLU MEDROL [Concomitant]
  24. MORPHINE [Concomitant]

REACTIONS (4)
  - Dehydration [Recovered/Resolved]
  - Confusional state [Recovered/Resolved]
  - Hypophagia [Recovered/Resolved]
  - Asthenia [Recovered/Resolved]
